FAERS Safety Report 5567101-6 (Version None)
Quarter: 2007Q4

REPORT INFORMATION
  Report Type: 
  Country: None (occurrence: None)
  Receive Date: 20071219
  Receipt Date: 20060919
  Transmission Date: 20080405
  Serious: Yes (Death, Other)
  Sender: FDA-Public Use
  Company Number: JP-ROCHE-463762

PATIENT
  Age: 30 Year
  Sex: Female

DRUGS (1)
  1. TRETINOIN [Suspect]
     Route: 065
     Dates: end: 19940101

REACTIONS (3)
  - DISSEMINATED INTRAVASCULAR COAGULATION [None]
  - LEUKAEMIC INFILTRATION EXTRAMEDULLARY [None]
  - PNEUMONIA [None]
